APPROVED DRUG PRODUCT: AMRIX
Active Ingredient: CYCLOBENZAPRINE HYDROCHLORIDE
Strength: 30MG
Dosage Form/Route: CAPSULE, EXTENDED RELEASE;ORAL
Application: N021777 | Product #002 | TE Code: AB
Applicant: TEVA PHARMACEUTICALS INTERNATIONAL GMBH
Approved: Feb 1, 2007 | RLD: Yes | RS: Yes | Type: RX